FAERS Safety Report 9919116 (Version 1)
Quarter: 2014Q1

REPORT INFORMATION
  Report Type: Spontaneous
  Country: US (occurrence: US)
  Receive Date: 20140224
  Receipt Date: 20140224
  Transmission Date: 20141002
  Serious: No
  Sender: FDA-Public Use
  Company Number: US-PFIZER INC-2014052603

PATIENT
  Sex: Male

DRUGS (4)
  1. LYRICA [Suspect]
     Indication: HYPOAESTHESIA
     Dosage: 1 DF, DAILY
  2. LYRICA [Suspect]
     Indication: PARAESTHESIA
     Dosage: 2 DF, DAILY
     Dates: end: 201402
  3. LYRICA [Suspect]
     Indication: PARAESTHESIA
  4. OXYCODONE [Concomitant]
     Indication: PAIN
     Dosage: UNK

REACTIONS (2)
  - Hypoaesthesia [Unknown]
  - Paraesthesia [Unknown]
